FAERS Safety Report 11933052 (Version 1)
Quarter: 2016Q1

REPORT INFORMATION
  Report Type: Spontaneous
  Country: US (occurrence: US)
  Receive Date: 20160121
  Receipt Date: 20160121
  Transmission Date: 20160526
  Serious: Yes (Hospitalization)
  Sender: FDA-Public Use
  Company Number: US-BIOGEN-2015BI134299

PATIENT
  Sex: Female

DRUGS (1)
  1. AVONEX [Suspect]
     Active Substance: INTERFERON BETA-1A
     Indication: MULTIPLE SCLEROSIS
     Route: 030
     Dates: start: 20150101, end: 20150901

REACTIONS (16)
  - Body temperature increased [Unknown]
  - Tremor [Unknown]
  - Influenza like illness [Unknown]
  - Vomiting [Unknown]
  - Abasia [Unknown]
  - Mobility decreased [Unknown]
  - Diplopia [Unknown]
  - Drug ineffective [Unknown]
  - Migraine [Unknown]
  - Insomnia [Unknown]
  - Pain [Unknown]
  - Multiple sclerosis relapse [Not Recovered/Not Resolved]
  - Dizziness [Unknown]
  - Cold sweat [Unknown]
  - Malaise [Recovered/Resolved]
  - Multiple sclerosis [Unknown]
